FAERS Safety Report 7787348-8 (Version None)
Quarter: 2011Q3

REPORT INFORMATION
  Report Type: 
  Country: None (occurrence: None)
  Receive Date: 20110929
  Receipt Date: 20110919
  Transmission Date: 20111222
  Serious: Yes (Disabling, Other)
  Sender: FDA-Public Use
  Company Number: PHEH2011US03116

PATIENT
  Sex: Female
  Weight: 93 kg

DRUGS (3)
  1. NEURONTIN [Concomitant]
     Indication: NEURALGIA
     Dosage: 300 MG, PRN
     Dates: start: 20110720
  2. NAPROXEN (ALEVE) [Concomitant]
     Dosage: UNK UKN, UNK
  3. GILENYA [Suspect]
     Indication: MULTIPLE SCLEROSIS
     Dosage: 0.5 MG, UNK
     Route: 048
     Dates: start: 20110804, end: 20110901

REACTIONS (3)
  - LOCAL SWELLING [None]
  - PAIN [None]
  - HEPATIC ENZYME INCREASED [None]
